FAERS Safety Report 9255260 (Version 1)
Quarter: 2013Q2

REPORT INFORMATION
  Report Type: Spontaneous
  Country: US (occurrence: None)
  Receive Date: 20130423
  Receipt Date: 20130423
  Transmission Date: 20140414
  Serious: Yes (Other)
  Sender: FDA-Public Use
  Company Number: None

PATIENT
  Sex: 0

DRUGS (1)
  1. DIVALPROEX SODIUM [Suspect]
     Indication: MOOD ALTERED
     Route: 048
     Dates: start: 20130418, end: 20130422

REACTIONS (1)
  - Rash [None]
